FAERS Safety Report 5388353-1 (Version None)
Quarter: 2007Q3

REPORT INFORMATION
  Report Type: 
  Country: None (occurrence: None)
  Receive Date: 20070711
  Receipt Date: 20070626
  Transmission Date: 20080115
  Serious: Yes (Death, Hospitalization)
  Sender: FDA-Public Use
  Company Number: AZAGR200600012

PATIENT
  Age: 76 Year
  Sex: Male
  Weight: 60 kg

DRUGS (1)
  1. AZACITIDINE (AZACITIDINE) (INJECTION) [Suspect]
     Indication: MYELODYSPLASTIC SYNDROME
     Dosage: 75 MG/M2 (120 MG, DAILY X 7 DAYS), SUBCUTANEOUS
     Route: 058
     Dates: start: 20051229, end: 20060104

REACTIONS (21)
  - ANAEMIA [None]
  - ATELECTASIS [None]
  - COUGH [None]
  - DEPRESSED LEVEL OF CONSCIOUSNESS [None]
  - ENDOCARDITIS [None]
  - EPISTAXIS [None]
  - HAEMATEMESIS [None]
  - HEPATOMEGALY [None]
  - INFARCTION [None]
  - LUNG INFECTION [None]
  - MOUTH ULCERATION [None]
  - MUCOSAL ULCERATION [None]
  - NEUTROPENIA [None]
  - NEUTROPENIC SEPSIS [None]
  - PANCYTOPENIA [None]
  - PLEURAL EFFUSION [None]
  - PYREXIA [None]
  - SEPTIC SHOCK [None]
  - SPLENIC ABSCESS [None]
  - SPLENOMEGALY [None]
  - STOMATITIS [None]
